FAERS Safety Report 6531180-X (Version None)
Quarter: 2010Q1

REPORT INFORMATION
  Report Type: 
  Country: None (occurrence: None)
  Receive Date: 20100108
  Receipt Date: 20091228
  Transmission Date: 20100710
  Serious: Yes (Other)
  Sender: FDA-Public Use
  Company Number: ES-JNJFOC-20091201873

PATIENT
  Age: 47 Year
  Sex: Female
  Weight: 110 kg

DRUGS (2)
  1. REMICADE [Suspect]
     Indication: PSORIASIS
     Dosage: APPROXIMATELY 5 INFUSIONS TOTAL
     Route: 042
     Dates: start: 20090414, end: 20090826
  2. ISONIAZID [Concomitant]
     Indication: ANTIBIOTIC PROPHYLAXIS

REACTIONS (2)
  - DISSEMINATED TUBERCULOSIS [None]
  - PERICARDITIS TUBERCULOUS [None]
